FAERS Safety Report 5508219-3 (Version None)
Quarter: 2007Q4

REPORT INFORMATION
  Report Type: 
  Country: None (occurrence: None)
  Receive Date: 20071106
  Receipt Date: 20071025
  Transmission Date: 20080405
  Serious: Yes (Death)
  Sender: FDA-Public Use
  Company Number: BR-PFIZER INC-2007090519

PATIENT
  Sex: Female

DRUGS (2)
  1. ZYVOX [Suspect]
     Indication: INFECTION
     Route: 042
  2. DRUG, UNSPECIFIED [Concomitant]

REACTIONS (1)
  - MULTI-ORGAN FAILURE [None]
